FAERS Safety Report 6710961-3 (Version None)
Quarter: 2010Q2

REPORT INFORMATION
  Report Type: 
  Country: None (occurrence: None)
  Receive Date: 20100505
  Receipt Date: 20100503
  Transmission Date: 20101027
  Serious: Yes (Other)
  Sender: FDA-Public Use
  Company Number: US-ASTRAZENECA-2007UW09606

PATIENT
  Age: 24 Year
  Sex: Female
  Weight: 131.5 kg

DRUGS (18)
  1. SEROQUEL [Suspect]
     Indication: SLEEP DISORDER
     Dosage: UPTO 400MG
     Route: 048
     Dates: start: 20040101
  2. SEROQUEL [Suspect]
     Indication: BIPOLAR DISORDER
     Dosage: UPTO 400MG
     Route: 048
     Dates: start: 20040101
  3. SEROQUEL [Suspect]
     Indication: DEPRESSION
     Dosage: UPTO 400MG
     Route: 048
     Dates: start: 20040101
  4. SEROQUEL [Suspect]
     Indication: TRAUMATIC BRAIN INJURY
     Dosage: UPTO 400MG
     Route: 048
     Dates: start: 20040101
  5. SEROQUEL [Suspect]
     Route: 048
     Dates: start: 20041201
  6. SEROQUEL [Suspect]
     Route: 048
     Dates: start: 20041201
  7. SEROQUEL [Suspect]
     Route: 048
     Dates: start: 20041201
  8. SEROQUEL [Suspect]
     Route: 048
     Dates: start: 20041201
  9. SEROQUEL [Suspect]
     Dosage: 100 MG TO 300 MG
     Route: 048
     Dates: start: 20040909
  10. SEROQUEL [Suspect]
     Dosage: 100 MG TO 300 MG
     Route: 048
     Dates: start: 20040909
  11. SEROQUEL [Suspect]
     Dosage: 100 MG TO 300 MG
     Route: 048
     Dates: start: 20040909
  12. SEROQUEL [Suspect]
     Dosage: 100 MG TO 300 MG
     Route: 048
     Dates: start: 20040909
  13. WELLBUTRIN XL [Concomitant]
  14. LAMICTAL [Concomitant]
  15. METOPROLOL [Concomitant]
  16. METFORMIN [Concomitant]
  17. ABILIFY [Concomitant]
  18. PROZAC [Concomitant]

REACTIONS (12)
  - ARTHRALGIA [None]
  - CARDIOMEGALY [None]
  - COUGH [None]
  - DEPRESSION [None]
  - DIARRHOEA [None]
  - GASTROINTESTINAL HAEMORRHAGE [None]
  - HEPATIC STEATOSIS [None]
  - HYPERTENSION [None]
  - NAUSEA [None]
  - OBESITY [None]
  - PANCREATITIS ACUTE [None]
  - VOMITING [None]
